FAERS Safety Report 12632315 (Version 4)
Quarter: 2016Q3

REPORT INFORMATION
  Report Type: Spontaneous
  Country: US (occurrence: US)
  Receive Date: 20160808
  Receipt Date: 20160824
  Transmission Date: 20161109
  Serious: No
  Sender: FDA-Public Use
  Company Number: US-BEH-2016062382

PATIENT
  Sex: Female
  Weight: 81.18 kg

DRUGS (46)
  1. LIDOCAINE/PRILOCAINE [Concomitant]
     Active Substance: LIDOCAINE\PRILOCAINE
  2. EPIPEN [Concomitant]
     Active Substance: EPINEPHRINE
  3. NOVOLOG [Concomitant]
     Active Substance: INSULIN ASPART
  4. SINGULAIR [Concomitant]
     Active Substance: MONTELUKAST SODIUM
  5. DIFLUCAN [Concomitant]
     Active Substance: FLUCONAZOLE
  6. CEFDINIR. [Concomitant]
     Active Substance: CEFDINIR
  7. BENADRYL [Concomitant]
     Active Substance: DIPHENHYDRAMINE HYDROCHLORIDE
  8. SAVELLA [Concomitant]
     Active Substance: MILNACIPRAN HYDROCHLORIDE
  9. VITAMIN D2 [Concomitant]
     Active Substance: ERGOCALCIFEROL
  10. HYDROCORTISONE. [Concomitant]
     Active Substance: HYDROCORTISONE
  11. PERCOCET [Concomitant]
     Active Substance: ACETAMINOPHEN\OXYCODONE HYDROCHLORIDE
  12. PROCTOSOL [Concomitant]
  13. CRESTOR [Concomitant]
     Active Substance: ROSUVASTATIN CALCIUM
  14. KLOR-CON [Concomitant]
     Active Substance: POTASSIUM CHLORIDE
  15. LASIX [Concomitant]
     Active Substance: FUROSEMIDE
  16. SONATA [Concomitant]
     Active Substance: ZALEPLON
  17. IBUPROFEN. [Concomitant]
     Active Substance: IBUPROFEN
  18. MUCINEX [Concomitant]
     Active Substance: GUAIFENESIN
  19. ACIDOPHILUS [Concomitant]
     Active Substance: LACTOBACILLUS ACIDOPHILUS
  20. HIZENTRA [Suspect]
     Active Substance: HUMAN IMMUNOGLOBULIN G
     Dosage: 16 G, QW
     Route: 058
     Dates: start: 20111220
  21. FLONASE [Concomitant]
     Active Substance: FLUTICASONE PROPIONATE
  22. ZOFRAN [Concomitant]
     Active Substance: ONDANSETRON HYDROCHLORIDE
  23. ADVAIR HFA [Concomitant]
     Active Substance: FLUTICASONE PROPIONATE\SALMETEROL XINAFOATE
  24. NORCO [Concomitant]
     Active Substance: ACETAMINOPHEN\HYDROCODONE BITARTRATE
  25. ASTELIN [Concomitant]
     Active Substance: AZELASTINE HYDROCHLORIDE
  26. CLARITIN [Concomitant]
     Active Substance: LORATADINE
  27. ZOFRAN [Concomitant]
     Active Substance: ONDANSETRON HYDROCHLORIDE
  28. FOSAMAX [Concomitant]
     Active Substance: ALENDRONATE SODIUM
  29. SYNTHROID [Concomitant]
     Active Substance: LEVOTHYROXINE SODIUM
  30. PREMARIN [Concomitant]
     Active Substance: ESTROGENS, CONJUGATED
  31. NORVASC [Concomitant]
     Active Substance: AMLODIPINE BESYLATE
  32. OCEAN SALINE NASAL SPRAY [Concomitant]
     Active Substance: SODIUM CHLORIDE
  33. ATIVAN [Concomitant]
     Active Substance: LORAZEPAM
  34. OXYGEN. [Concomitant]
     Active Substance: OXYGEN
  35. VICTOZA [Concomitant]
     Active Substance: LIRAGLUTIDE
  36. ZICAM                              /00285201/ [Concomitant]
  37. DIPHENHYDRAMINE. [Concomitant]
     Active Substance: DIPHENHYDRAMINE
  38. PREDNISONE. [Concomitant]
     Active Substance: PREDNISONE
  39. CALTRATE [Concomitant]
     Active Substance: CALCIUM CARBONATE
  40. COMBIVENT [Concomitant]
     Active Substance: ALBUTEROL SULFATE\IPRATROPIUM BROMIDE
  41. VIT-IRON [Concomitant]
  42. SENNA LAXATIVE [Concomitant]
     Active Substance: SENNOSIDES
  43. HIZENTRA [Suspect]
     Active Substance: HUMAN IMMUNOGLOBULIN G
     Indication: IMMUNODEFICIENCY COMMON VARIABLE
     Dosage: 16 G, QW
     Route: 058
  44. BYSTOLIC [Concomitant]
     Active Substance: NEBIVOLOL HYDROCHLORIDE
  45. FERROUS GLUCONATE [Concomitant]
     Active Substance: FERROUS GLUCONATE
  46. COLACE [Concomitant]
     Active Substance: DOCUSATE SODIUM

REACTIONS (1)
  - Sinusitis [Unknown]
